FAERS Safety Report 10054006 (Version 2)
Quarter: 2014Q2

REPORT INFORMATION
  Report Type: Spontaneous
  Country: US (occurrence: US)
  Receive Date: 20140402
  Receipt Date: 20140515
  Transmission Date: 20141212
  Serious: Yes (Other)
  Sender: FDA-Public Use
  Company Number: US-PFIZER INC-2014090103

PATIENT
  Age: 74 Year
  Sex: Male

DRUGS (3)
  1. LYRICA [Suspect]
     Indication: PAIN
     Dosage: 100 MG, 1X/DAY
     Dates: start: 2009
  2. LYRICA [Suspect]
     Indication: NEUROPATHY PERIPHERAL
     Dosage: 150 MG, 1X/DAY (ONE PILL ONCE A DAY IN THE MORNING AFTER I WOKE)
     Dates: start: 2010
  3. LYRICA [Suspect]
     Dosage: 200 MG, 1X/DAY (ONE A DOSE/PILL PER DAY)
     Dates: start: 20111023

REACTIONS (10)
  - Medication error [Unknown]
  - Road traffic accident [Unknown]
  - Loss of consciousness [Unknown]
  - Somnolence [Unknown]
  - Neuropathy peripheral [Recovering/Resolving]
  - Contusion [Unknown]
  - Musculoskeletal pain [Unknown]
  - Pain in extremity [Unknown]
  - Hypopnoea [Unknown]
  - Vitamin B12 deficiency [Recovering/Resolving]
